FAERS Safety Report 10174517 (Version 2)
Quarter: 2014Q2

REPORT INFORMATION
  Report Type: Spontaneous
  Country: US (occurrence: US)
  Receive Date: 20140515
  Receipt Date: 20140515
  Transmission Date: 20141212
  Serious: No
  Sender: FDA-Public Use
  Company Number: US-GILEAD-2014-0093688

PATIENT
  Age: 48 Year
  Sex: Male
  Weight: 101.2 kg

DRUGS (6)
  1. LETAIRIS [Suspect]
     Indication: PULMONARY ARTERIAL HYPERTENSION
     Dosage: 10 MG, QD
     Route: 048
     Dates: start: 20130322
  2. REVATIO [Concomitant]
  3. METOPROLOL [Concomitant]
  4. PRAVACHOL [Concomitant]
  5. LASIX                              /00032601/ [Concomitant]
  6. FLONASE                            /00908302/ [Concomitant]

REACTIONS (1)
  - Transaminases increased [Recovered/Resolved]
